FAERS Safety Report 8563991-3 (Version None)
Quarter: 2012Q3

REPORT INFORMATION
  Report Type: 
  Country: None (occurrence: None)
  Receive Date: 20120803
  Receipt Date: 20120730
  Transmission Date: 20120928
  Serious: Yes (Other)
  Sender: FDA-Public Use
  Company Number: PHHY2012ID066356

PATIENT

DRUGS (5)
  1. ZOLEDRONOC ACID [Suspect]
     Indication: OSTEOPOROSIS
     Dosage: UNK UKN, UNK
     Route: 042
     Dates: start: 20120730
  2. OSTEOCARE [Concomitant]
     Indication: SUPPLEMENTATION THERAPY
     Dosage: UNK UKN, UNK
     Dates: start: 20120730
  3. ACETAMINOPHEN [Concomitant]
     Indication: PAIN
     Dosage: UNK UKN, UNK
     Dates: start: 20120730
  4. CALCITRIOL [Concomitant]
     Dosage: UNK UKN, UNK
     Dates: start: 20120730
  5. ULTRACET [Concomitant]
     Indication: PAIN
     Dosage: PARACETAMOL 325 MG, TRAMADOL 375 MG
     Dates: start: 20120730

REACTIONS (2)
  - CONJUNCTIVAL HYPERAEMIA [None]
  - OCULAR ICTERUS [None]
